FAERS Safety Report 8575275-8 (Version None)
Quarter: 2012Q3

REPORT INFORMATION
  Report Type: 
  Country: None (occurrence: None)
  Receive Date: 20120807
  Receipt Date: 20120730
  Transmission Date: 20120928
  Serious: Yes (Disabling, Other)
  Sender: FDA-Public Use
  Company Number: US-PFIZER INC-2012183636

PATIENT
  Age: 81 Year
  Sex: Female
  Weight: 61.2 kg

DRUGS (16)
  1. LYRICA [Interacting]
     Indication: BURNING SENSATION
  2. HYDROCODONE BITARTRATE [Interacting]
     Indication: SPINAL PAIN
  3. RIVASTIGIME TARTRATE [Interacting]
     Indication: DEMENTIA
     Dosage: UNK
  4. XANAX [Interacting]
     Indication: PANIC ATTACK
     Dosage: 1 MG, AS NEEDED
  5. SYNTHROID [Interacting]
     Indication: THYROID DISORDER
     Dosage: 50 UG, DAILY
  6. LYRICA [Interacting]
     Indication: PAIN
  7. MULTI-VITAMINS [Interacting]
     Dosage: UNK
  8. HYDROCODONE BITARTRATE [Interacting]
     Indication: SPINAL CORD DISORDER
     Dosage: 350 MG, AS NEEDED (ONE OR TWO TIMES A DAY)
  9. HYDROCODONE BITARTRATE [Interacting]
     Indication: ARTHRITIS
  10. LYRICA [Suspect]
     Indication: VEIN PAIN
     Dosage: 50 MG, DAILY
     Route: 048
     Dates: start: 20120726, end: 20120728
  11. LOVASTATIN [Interacting]
     Indication: BLOOD CHOLESTEROL
     Dosage: 20 MG, DAILY
  12. OXYBUTYNIN CHLORIDE [Interacting]
     Indication: HYPERTONIC BLADDER
     Dosage: 10 MG, UNK
  13. FISH OIL [Interacting]
     Dosage: UNK
  14. XANAX [Interacting]
     Indication: ANXIETY
  15. ASPIRIN [Interacting]
     Indication: HYPERTENSION
     Dosage: 81 MG, DAILY
  16. LISINOPRIL [Interacting]
     Indication: HYPERTENSION
     Dosage: 10 MG, 3X/DAY

REACTIONS (21)
  - ABDOMINAL PAIN UPPER [None]
  - HYPERTENSION [None]
  - INFLUENZA LIKE ILLNESS [None]
  - WEIGHT DECREASED [None]
  - MOBILITY DECREASED [None]
  - NAUSEA [None]
  - DRY MOUTH [None]
  - CHILLS [None]
  - OEDEMA PERIPHERAL [None]
  - PARAESTHESIA [None]
  - PAIN [None]
  - GAIT DISTURBANCE [None]
  - PYREXIA [None]
  - HEADACHE [None]
  - FATIGUE [None]
  - INSOMNIA [None]
  - MUSCLE SPASMS [None]
  - MALAISE [None]
  - DIZZINESS [None]
  - DRUG INTERACTION [None]
  - VISION BLURRED [None]
